FAERS Safety Report 5119412-6 (Version None)
Quarter: 2006Q4

REPORT INFORMATION
  Report Type: 
  Country: None (occurrence: None)
  Receive Date: 20061003
  Receipt Date: 20060922
  Transmission Date: 20070319
  Serious: Yes (Other)
  Sender: FDA-Public Use
  Company Number: US-JNJFOC-20060905777

PATIENT
  Age: 38 Year
  Sex: Female
  Weight: 60.78 kg

DRUGS (3)
  1. TOPAMAX [Suspect]
     Indication: MIGRAINE
     Route: 048
  2. TYLENOL PM [Concomitant]
  3. INSULIN [Concomitant]
     Indication: DIABETES MELLITUS

REACTIONS (8)
  - CLAUSTROPHOBIA [None]
  - DIZZINESS [None]
  - FEELING JITTERY [None]
  - HEART RATE INCREASED [None]
  - IRRITABILITY [None]
  - NERVOUSNESS [None]
  - PALPITATIONS [None]
  - TUNNEL VISION [None]
